FAERS Safety Report 17853028 (Version 2)
Quarter: 2020Q2

REPORT INFORMATION
  Report Type: Spontaneous
  Country: US (occurrence: US)
  Receive Date: 20200602
  Receipt Date: 20200619
  Transmission Date: 20200714
  Serious: No
  Sender: FDA-Public Use
  Company Number: US-009507513-2005USA006047

PATIENT
  Sex: Female

DRUGS (3)
  1. ETONOGESTREL (+) ETHINYL ESTRADIOL [Suspect]
     Active Substance: ETHINYL ESTRADIOL\ETONOGESTREL
     Dosage: 1 RING (REPORTED AS 1 (3 RINGS))
     Route: 067
     Dates: start: 20200420
  2. NUVARING [Suspect]
     Active Substance: ETHINYL ESTRADIOL\ETONOGESTREL
     Dosage: 1 RING
     Route: 067
  3. ETONOGESTREL (+) ETHINYL ESTRADIOL [Suspect]
     Active Substance: ETHINYL ESTRADIOL\ETONOGESTREL
     Dosage: 1 RING (REPORTED AS 1 (3 RINGS))
     Route: 067
     Dates: start: 202002, end: 2020

REACTIONS (5)
  - Metrorrhagia [Unknown]
  - Withdrawal bleed [Unknown]
  - Metrorrhagia [Unknown]
  - Hypomenorrhoea [Unknown]
  - Metrorrhagia [Unknown]

NARRATIVE: CASE EVENT DATE: 202004
